FAERS Safety Report 9185178 (Version 1)
Quarter: 2012Q4

REPORT INFORMATION
  Report Type: Report from Study
  Country: GB (occurrence: GB)
  Receive Date: 20121101
  Receipt Date: 20121101
  Transmission Date: 20130627
  Serious: Yes (Other)
  Sender: FDA-Public Use
  Company Number: GB-ROCHE-1151234

PATIENT
  Age: 65 None
  Sex: Female

DRUGS (1)
  1. RITUXIMAB [Suspect]
     Indication: RHEUMATOID ARTHRITIS
     Dosage: last dose prior to SAE: 27/Apr/2012
     Route: 050
     Dates: start: 20081007, end: 20120427

REACTIONS (1)
  - Anaphylactic reaction [Recovered/Resolved]
